FAERS Safety Report 7788933-X (Version None)
Quarter: 2011Q3

REPORT INFORMATION
  Report Type: 
  Country: None (occurrence: None)
  Receive Date: 20110930
  Receipt Date: 20110925
  Transmission Date: 20111222
  Serious: Yes (Hospitalization)
  Sender: FDA-Public Use
  Company Number: DE-UCBSA-040757

PATIENT
  Sex: Female
  Weight: 19 kg

DRUGS (4)
  1. KEPPRA [Suspect]
     Dosage: UNKNOWN QUANTITY
  2. VALPROIC ACID [Suspect]
     Dosage: UNKNOWN QUANTITY
  3. TOPIRAMATE [Suspect]
     Dosage: UNKNOWN QUANTITY
  4. LAMICTAL [Suspect]
     Dosage: TOTAL AMOUNT:750 MG

REACTIONS (6)
  - ACCIDENTAL DRUG INTAKE BY CHILD [None]
  - CONVULSION [None]
  - LISTLESS [None]
  - RASH [None]
  - TREMOR [None]
  - VOMITING [None]
